FAERS Safety Report 8120079-3 (Version None)
Quarter: 2012Q1

REPORT INFORMATION
  Report Type: 
  Country: None (occurrence: None)
  Receive Date: 20120207
  Receipt Date: 20120201
  Transmission Date: 20120608
  Serious: Yes (Other)
  Sender: FDA-Public Use
  Company Number: US-TEVA-321007USA

PATIENT
  Sex: Male

DRUGS (2)
  1. ADDERALL 5 [Suspect]
  2. NUVIGIL [Suspect]
     Route: 048

REACTIONS (1)
  - APHASIA [None]
